FAERS Safety Report 14524922 (Version 5)
Quarter: 2018Q2

REPORT INFORMATION
  Report Type: Report from Study
  Country: US (occurrence: US)
  Receive Date: 20180213
  Receipt Date: 20180420
  Transmission Date: 20180711
  Serious: Yes (Hospitalization, Other)
  Sender: FDA-Public Use
  Company Number: US-GILEAD-2018-0320650

PATIENT
  Age: 79 Year
  Sex: Female

DRUGS (1)
  1. AMBRISENTAN [Suspect]
     Active Substance: AMBRISENTAN
     Indication: PULMONARY ARTERIAL HYPERTENSION
     Dosage: 10 MG, QD
     Route: 065
     Dates: start: 20160408, end: 20180408

REACTIONS (7)
  - Swelling face [Not Recovered/Not Resolved]
  - Fluid retention [Unknown]
  - Swelling face [Unknown]
  - Eye swelling [Unknown]
  - Drug hypersensitivity [Unknown]
  - Heart valve operation [Unknown]
  - Swelling [Unknown]
